FAERS Safety Report 8577754-6 (Version None)
Quarter: 2012Q3

REPORT INFORMATION
  Report Type: 
  Country: None (occurrence: None)
  Receive Date: 20120808
  Receipt Date: 20120803
  Transmission Date: 20120928
  Serious: Yes (Hospitalization)
  Sender: FDA-Public Use
  Company Number: JP-BIOGENIDEC-2012BI013896

PATIENT
  Age: 41 Year
  Sex: Male

DRUGS (8)
  1. LANSOPRAZOLE [Concomitant]
     Dates: start: 20120410, end: 20120418
  2. TYSABRI [Suspect]
     Indication: RELAPSING-REMITTING MULTIPLE SCLEROSIS
     Dates: start: 20120410, end: 20120410
  3. GABAPENTIN [Concomitant]
  4. ALENDRONATE SODIUM [Concomitant]
     Dates: end: 20120415
  5. MEXETIL [Concomitant]
  6. LOXONIN [Concomitant]
     Dates: end: 20120420
  7. LANSOPRAZOLE [Concomitant]
     Dates: start: 20120217, end: 20120409
  8. VITAMIN B12 [Concomitant]

REACTIONS (2)
  - OESOPHAGEAL ULCER [None]
  - EOSINOPHIL COUNT INCREASED [None]
